FAERS Safety Report 8682501 (Version 2)
Quarter: 2013Q2

REPORT INFORMATION
  Report Type: Spontaneous
  Country: US (occurrence: None)
  Receive Date: 20120406
  Receipt Date: 20120705
  Transmission Date: 20140414
  Serious: Yes (Hospitalization)
  Sender: FDA-Public Use
  Company Number: US-CYPR-2011-000066

PATIENT
  Age: 59 Year
  Sex: Male
  Weight: 96.16 kg

DRUGS (6)
  1. CLOPIDOGREL [Suspect]
     Indication: CORONARY ARTERY DISEASE
     Dosage: (75 MG BID ORAL) ; (75 MG QD ORAL)
     Route: 048
     Dates: start: 20110909, end: 20111027
  2. ASPIRIN [Suspect]
     Indication: CORONARY ARTERY DISEASE
     Dosage: (325 MG QD ORAL)
     Route: 048
     Dates: end: 20111027
  3. CRESTOR [Concomitant]
  4. METOPROLOL SUCCINATE [Concomitant]
  5. COZAAR [Concomitant]
  6. CYPHER STENT [Concomitant]

REACTIONS (1)
  - Angina unstable [None]
